FAERS Safety Report 17486875 (Version 1)
Quarter: 2020Q1

REPORT INFORMATION
  Report Type: Report from Study
  Country: KR (occurrence: KR)
  Receive Date: 20200303
  Receipt Date: 20200303
  Transmission Date: 20200409
  Serious: Yes (Other)
  Sender: FDA-Public Use
  Company Number: KR-ROCHE-2558873

PATIENT

DRUGS (3)
  1. PACLITAXEL. [Suspect]
     Active Substance: PACLITAXEL
     Indication: CERVIX CARCINOMA
     Route: 065
  2. BEVACIZUMAB. [Suspect]
     Active Substance: BEVACIZUMAB
     Indication: CERVIX CARCINOMA
     Route: 065
  3. CISPLATIN. [Suspect]
     Active Substance: CISPLATIN
     Indication: CERVIX CARCINOMA
     Route: 065

REACTIONS (20)
  - Embolism [Unknown]
  - Pain [Unknown]
  - Herpes zoster [Unknown]
  - Haematuria [Unknown]
  - Alanine aminotransferase abnormal [Unknown]
  - Gastroenteritis [Unknown]
  - Abdominal pain [Unknown]
  - Blood creatinine abnormal [Unknown]
  - Ileus [Unknown]
  - Urinary tract infection [Unknown]
  - Granulocytopenia [Unknown]
  - Febrile neutropenia [Recovered/Resolved]
  - Anaemia [Unknown]
  - Thrombocytopenia [Unknown]
  - Vaginal haemorrhage [Unknown]
  - Epistaxis [Unknown]
  - Haematochezia [Unknown]
  - Melaena [Unknown]
  - Intestinal perforation [Unknown]
  - Fistula [Unknown]
